FAERS Safety Report 5123274-0 (Version None)
Quarter: 2006Q4

REPORT INFORMATION
  Report Type: 
  Country: None (occurrence: None)
  Receive Date: 20061009
  Receipt Date: 20060904
  Transmission Date: 20070319
  Serious: Yes (Other)
  Sender: FDA-Public Use
  Company Number: 2006JP003041

PATIENT
  Age: 42 Year
  Sex: Male
  Weight: 41 kg

DRUGS (14)
  1. CEFAZOLIN [Suspect]
     Indication: PYOTHORAX
     Dosage: 1G PER DAY
     Route: 042
     Dates: start: 20060812, end: 20060824
  2. CEFAZOLIN [Suspect]
     Dosage: 2G PER DAY
     Route: 042
     Dates: start: 20060825, end: 20060827
  3. DALACIN [Concomitant]
     Indication: DRUG USE FOR UNKNOWN INDICATION
     Dosage: 1.8G PER DAY
     Route: 042
     Dates: start: 20060821, end: 20060827
  4. AMLODIN [Concomitant]
     Route: 048
     Dates: start: 20060731
  5. RIFADIN [Concomitant]
     Dates: start: 20060729
  6. BLOPRESS [Concomitant]
     Dates: start: 20060731
  7. PARIET [Concomitant]
     Route: 048
     Dates: start: 20060731
  8. UNASYN [Concomitant]
     Route: 065
     Dates: start: 20060731, end: 20060811
  9. ESPO [Concomitant]
     Dates: start: 20060721
  10. RECOMBINATE [Concomitant]
     Route: 065
     Dates: start: 20060731
  11. VANCOMYCIN [Concomitant]
     Dates: start: 20060729, end: 20060801
  12. BACTRIM [Concomitant]
     Dates: start: 20060827, end: 20060827
  13. WHOLE BLOOD TRANSFUSION [Concomitant]
     Route: 065
     Dates: start: 20060701, end: 20060801
  14. MAP (RED BLOOD CELLS) [Concomitant]

REACTIONS (11)
  - BLOOD PRESSURE DECREASED [None]
  - CONVULSION [None]
  - DEPRESSED LEVEL OF CONSCIOUSNESS [None]
  - DRUG LEVEL INCREASED [None]
  - DYSARTHRIA [None]
  - DYSKINESIA [None]
  - HAEMODIALYSIS [None]
  - MOVEMENT DISORDER [None]
  - MUSCULAR WEAKNESS [None]
  - MYOCLONUS [None]
  - TONIC CONVULSION [None]
